FAERS Safety Report 18579014 (Version 1)
Quarter: 2020Q4

REPORT INFORMATION
  Report Type: Spontaneous
  Country: NL (occurrence: NL)
  Receive Date: 20201204
  Receipt Date: 20201204
  Transmission Date: 20210114
  Serious: Yes (Life-Threatening, Other)
  Sender: FDA-Public Use
  Company Number: NL-ALK-ABELLO A/S-2020AA004024

PATIENT

DRUGS (6)
  1. FLUTICASONE PROPIONATE. [Concomitant]
     Active Substance: FLUTICASONE PROPIONATE
     Indication: MITE ALLERGY
     Dosage: UNK
     Route: 045
     Dates: start: 20201028
  2. ACARIZAX [Suspect]
     Active Substance: DERMATOPHAGOIDES FARINAE\DERMATOPHAGOIDES PTERONYSSINUS
     Indication: MITE ALLERGY
     Dosage: UNK
     Dates: start: 20201106, end: 20201120
  3. OPATANOL                           /01362801/ [Concomitant]
     Indication: MITE ALLERGY
     Dosage: UNK
     Route: 047
     Dates: start: 20201028
  4. FLU                                /01389801/ [Concomitant]
     Indication: PRODUCT USED FOR UNKNOWN INDICATION
     Dosage: UNK
     Dates: start: 20201120
  5. AZELASTINE. [Concomitant]
     Active Substance: AZELASTINE HYDROCHLORIDE
     Indication: MITE ALLERGY
     Dosage: UNK
     Route: 045
     Dates: start: 20201028
  6. DESLORATADINE. [Concomitant]
     Active Substance: DESLORATADINE
     Indication: MITE ALLERGY
     Dosage: 5 MICROGRAM
     Route: 048
     Dates: start: 20201106

REACTIONS (11)
  - Pharyngeal swelling [Recovered/Resolved]
  - Oral pruritus [Recovered/Resolved]
  - Dyspepsia [Recovered/Resolved]
  - Nocturnal dyspnoea [Unknown]
  - Wheezing [Recovered/Resolved]
  - Cough [Recovered/Resolved]
  - Dyspnoea [Recovered/Resolved]
  - Tongue disorder [Recovered/Resolved]
  - Pharyngeal swelling [Recovered/Resolved]
  - Abdominal discomfort [Recovered/Resolved]
  - Dysphagia [Recovered/Resolved]

NARRATIVE: CASE EVENT DATE: 20201106
